FAERS Safety Report 24164941 (Version 2)
Quarter: 2024Q3

REPORT INFORMATION
  Report Type: Report from Study
  Country: UY (occurrence: UY)
  Receive Date: 20240802
  Receipt Date: 20240930
  Transmission Date: 20241016
  Serious: Yes (Hospitalization, Other)
  Sender: ABBVIE
  Company Number: UY-ABBVIE-5860841

PATIENT
  Age: 67 Year
  Sex: Male

DRUGS (1)
  1. RINVOQ [Suspect]
     Active Substance: UPADACITINIB
     Indication: Rheumatoid arthritis
     Route: 048
     Dates: end: 20240628

REACTIONS (4)
  - Pulmonary oedema [Recovered/Resolved]
  - Productive cough [Recovered/Resolved]
  - Pneumonia pneumococcal [Unknown]
  - Lung disorder [Unknown]

NARRATIVE: CASE EVENT DATE: 20240701
